FAERS Safety Report 9773773 (Version 1)
Quarter: 2013Q4

REPORT INFORMATION
  Report Type: Spontaneous
  Country: GB (occurrence: GB)
  Receive Date: 20131219
  Receipt Date: 20131219
  Transmission Date: 20140711
  Serious: Yes (Life-Threatening, Hospitalization)
  Sender: FDA-Public Use
  Company Number: GB-ROCHE-1322274

PATIENT
  Age: 71 Year
  Sex: Male
  Weight: 80.8 kg

DRUGS (12)
  1. CAPECITABINE [Suspect]
     Indication: GASTROINTESTINAL CARCINOMA
     Route: 048
     Dates: start: 20121115, end: 20130707
  2. BEVACIZUMAB [Concomitant]
     Route: 065
  3. DEXAMETHASONE [Concomitant]
  4. FINASTERIDE [Concomitant]
  5. GLICLAZIDE [Concomitant]
  6. IRINOTECAN [Concomitant]
  7. LOPERAMIDE [Concomitant]
  8. METFORMIN [Concomitant]
  9. METOCLOPRAMIDE [Concomitant]
  10. OMEPRAZOLE [Concomitant]
  11. ONDANSETRON [Concomitant]
  12. PRAVASTATIN [Concomitant]

REACTIONS (3)
  - Chest pain [Recovered/Resolved]
  - Acute myocardial infarction [Recovered/Resolved]
  - Troponin I increased [Unknown]
